FAERS Safety Report 6191553-4 (Version None)
Quarter: 2009Q2

REPORT INFORMATION
  Report Type: 
  Country: None (occurrence: None)
  Receive Date: 20090515
  Receipt Date: 20090417
  Transmission Date: 20091009
  Serious: Yes (Hospitalization)
  Sender: FDA-Public Use
  Company Number: CH-ASTRAZENECA-2009PK00966

PATIENT
  Age: 29088 Day
  Sex: Male
  Weight: 88 kg

DRUGS (5)
  1. SEROQUEL XR [Suspect]
     Indication: BIPOLAR I DISORDER
     Route: 048
  2. SEROQUEL XR [Suspect]
     Route: 048
  3. SEROQUEL XR [Suspect]
     Route: 048
  4. SEROQUEL XR [Suspect]
     Route: 048
  5. SEROQUEL XR [Suspect]
     Route: 048

REACTIONS (7)
  - APATHY [None]
  - APHASIA [None]
  - CONFUSIONAL STATE [None]
  - DEPRESSION [None]
  - EXTRAPYRAMIDAL DISORDER [None]
  - LISTLESS [None]
  - SPEECH DISORDER [None]
